FAERS Safety Report 5510075-4 (Version None)
Quarter: 2007Q4

REPORT INFORMATION
  Report Type: 
  Country: None (occurrence: None)
  Receive Date: 20071108
  Receipt Date: 20071018
  Transmission Date: 20080405
  Serious: No
  Sender: FDA-Public Use
  Company Number: US-ABBOTT-07P-163-0421294-00

PATIENT
  Sex: Male
  Weight: 102 kg

DRUGS (3)
  1. BIAXIN FILMTABS [Suspect]
     Indication: SINUSITIS
     Route: 048
     Dates: start: 20071017
  2. NIFEDIPINE [Concomitant]
     Indication: DRUG USE FOR UNKNOWN INDICATION
     Route: 048
  3. MONTELUKAST SODIUM [Concomitant]
     Indication: DRUG USE FOR UNKNOWN INDICATION
     Route: 048

REACTIONS (3)
  - DIZZINESS [None]
  - DYSGEUSIA [None]
  - HYPOTENSION [None]
